FAERS Safety Report 8496855-4 (Version None)
Quarter: 2012Q3

REPORT INFORMATION
  Report Type: 
  Country: None (occurrence: None)
  Receive Date: 20120709
  Receipt Date: 20120626
  Transmission Date: 20120928
  Serious: Yes (Other)
  Sender: FDA-Public Use
  Company Number: JP-ELI_LILLY_AND_COMPANY-JP201206008542

PATIENT
  Age: 85 Year
  Sex: Female

DRUGS (7)
  1. FORTEO [Suspect]
     Indication: OSTEOPOROSIS
     Dosage: 20 UG, QD
     Route: 058
     Dates: start: 20120126, end: 20120626
  2. OMEPRAZOLE [Concomitant]
     Indication: GASTROOESOPHAGEAL REFLUX DISEASE
     Dosage: UNK
     Route: 048
  3. ADALAT [Concomitant]
     Indication: HYPERTENSION
     Dosage: 20 MG, UNK
     Route: 048
  4. MAGLAX [Concomitant]
  5. PURSENNID [Concomitant]
     Indication: CONSTIPATION
     Route: 048
  6. ADALAT [Concomitant]
     Dosage: 10 MG, UNK
     Route: 048
  7. PROMAC                             /01312301/ [Concomitant]
     Dosage: UNK
     Route: 048

REACTIONS (5)
  - MUSCLE TWITCHING [None]
  - PAIN [None]
  - DYSPNOEA [None]
  - MUSCLE SPASMS [None]
  - BLOOD PRESSURE DECREASED [None]
